FAERS Safety Report 8275539-1 (Version None)
Quarter: 2012Q2

REPORT INFORMATION
  Report Type: 
  Country: None (occurrence: None)
  Receive Date: 20120412
  Receipt Date: 20120404
  Transmission Date: 20120825
  Serious: Yes (Other)
  Sender: FDA-Public Use
  Company Number: SE-BRISTOL-MYERS SQUIBB COMPANY-16501553

PATIENT
  Age: 47 Year
  Sex: Male

DRUGS (1)
  1. ABILIFY [Suspect]
     Indication: DISSOCIATIVE DISORDER
     Dates: end: 20070802

REACTIONS (1)
  - SCHIZOPHRENIA [None]
